FAERS Safety Report 7372565-1 (Version None)
Quarter: 2011Q1

REPORT INFORMATION
  Report Type: 
  Country: None (occurrence: None)
  Receive Date: 20110324
  Receipt Date: 20110321
  Transmission Date: 20110831
  Serious: Yes (Hospitalization)
  Sender: FDA-Public Use
  Company Number: NL-BRISTOL-MYERS SQUIBB COMPANY-15429343

PATIENT
  Age: 66 Year
  Sex: Female

DRUGS (16)
  1. VINORELBINE [Suspect]
     Indication: NON-SMALL CELL LUNG CANCER
     Dosage: MOST RECENT INFUSION ON 09NOV2010
     Route: 042
     Dates: start: 20101012
  2. CARBOPLATIN [Suspect]
     Indication: NON-SMALL CELL LUNG CANCER
     Dosage: 1DF=AUC5.MOST RECENT INFUSION ON 20SEP2010
     Route: 042
     Dates: start: 20100920, end: 20100920
  3. MORPHINE [Concomitant]
     Dates: start: 20101112
  4. TEMGESIC [Concomitant]
     Dosage: 0.2MG 1DD
     Dates: start: 20101112
  5. GEMCITABINE [Suspect]
     Indication: NON-SMALL CELL LUNG CANCER
     Route: 042
     Dates: start: 20100920, end: 20100927
  6. CETUXIMAB [Suspect]
     Indication: NON-SMALL CELL LUNG CANCER
     Dosage: MOST RECENT INFUSION ON 09NOV2010. INITIAL DOSE 400MG/M2
     Route: 042
     Dates: start: 20101005
  7. VALSARTAN  AND HYDROCHLOROTHIAZIDE [Concomitant]
  8. OXYCONTIN [Concomitant]
     Dates: start: 20101112
  9. AMLODIPINE [Concomitant]
  10. METOPROLOL [Concomitant]
  11. PARACETAMOL [Concomitant]
     Dates: start: 20101112
  12. TEMGESIC [Concomitant]
     Route: 060
     Dates: start: 20101112
  13. CISPLATIN [Suspect]
     Indication: NON-SMALL CELL LUNG CANCER
     Dosage: MOST RECENT INFUSION ON 02NOV2010
     Route: 042
     Dates: start: 20101012
  14. ASCAL [Concomitant]
  15. CODEINE [Concomitant]
  16. OXYCODONE [Concomitant]
     Dosage: 1DD 20MG
     Dates: start: 20101112

REACTIONS (1)
  - OESOPHAGITIS [None]
